FAERS Safety Report 6879995-2 (Version None)
Quarter: 2010Q3

REPORT INFORMATION
  Report Type: 
  Country: None (occurrence: None)
  Receive Date: 20100728
  Receipt Date: 20100715
  Transmission Date: 20110219
  Serious: Yes (Other)
  Sender: FDA-Public Use
  Company Number: PHHY2010DE46892

PATIENT
  Sex: Female

DRUGS (8)
  1. RASILEZ [Suspect]
     Dosage: 150 MG/DAY
     Dates: start: 20100702
  2. HCT [Suspect]
     Dosage: 25 MG/DAY
  3. CANDESARTAN CILEXETIL [Concomitant]
     Dosage: 160 MG/DAY
  4. VERAPAMIL [Concomitant]
     Dosage: UNK
  5. LYRICA [Concomitant]
     Dosage: 75 MG/DAY
  6. MIRTAZAPINE [Concomitant]
     Dosage: 7.5 MG/DAY
  7. CYMBALTA [Concomitant]
     Dosage: 30 MG/DAY
  8. LEVOTHYROXINE SODIUM [Concomitant]
     Dosage: 25 UG

REACTIONS (1)
  - HYPONATRAEMIA [None]
